FAERS Safety Report 22310317 (Version 14)
Quarter: 2024Q1

REPORT INFORMATION
  Report Type: Spontaneous
  Country: US (occurrence: US)
  Receive Date: 20230511
  Receipt Date: 20240206
  Transmission Date: 20240410
  Serious: Yes (Hospitalization)
  Sender: FDA-Public Use
  Company Number: US-KARYOPHARM-2023KPT001215

PATIENT

DRUGS (21)
  1. XPOVIO [Suspect]
     Active Substance: SELINEXOR
     Indication: Plasma cell myeloma
     Dosage: 100 MG, WEEKLY
     Route: 048
     Dates: start: 202304, end: 202306
  2. XPOVIO [Suspect]
     Active Substance: SELINEXOR
     Dosage: 80 MG, WEEKLY, THREE WEEKS ON, ONE WEEK OFF
     Route: 048
     Dates: start: 202304
  3. XPOVIO [Suspect]
     Active Substance: SELINEXOR
     Dosage: 100 MG, WEEKLY
     Route: 048
     Dates: start: 202306, end: 202307
  4. XPOVIO [Suspect]
     Active Substance: SELINEXOR
     Dosage: 80 MG, WEEKLY
     Route: 048
     Dates: start: 20230710, end: 2023
  5. XPOVIO [Suspect]
     Active Substance: SELINEXOR
     Dosage: 80 MG, WEEKLY
     Route: 048
     Dates: start: 2023, end: 202311
  6. XPOVIO [Suspect]
     Active Substance: SELINEXOR
     Dosage: 80 MG, WEEKLY FOR 3 WEEKS ON AND 1 WEEK OFF
     Route: 048
     Dates: start: 2023, end: 2024
  7. ATORVASTATIN [Concomitant]
     Active Substance: ATORVASTATIN
  8. DEXAMETHASONE [Concomitant]
     Active Substance: DEXAMETHASONE
  9. DULOXETINE [Concomitant]
     Active Substance: DULOXETINE
  10. LORAZEPAM [Concomitant]
     Active Substance: LORAZEPAM
  11. LYRICA [Concomitant]
     Active Substance: PREGABALIN
  12. METFORMIN [Concomitant]
     Active Substance: METFORMIN HYDROCHLORIDE
  13. NOVOLIN R [Concomitant]
     Active Substance: INSULIN HUMAN
  14. ONDANSETRON [Concomitant]
     Active Substance: ONDANSETRON
  15. PROCHLORPERAZINE [Concomitant]
     Active Substance: PROCHLORPERAZINE
  16. REVLIMID [Concomitant]
     Active Substance: LENALIDOMIDE
  17. TRESIBA [Concomitant]
     Active Substance: INSULIN DEGLUDEC
  18. TRIAMCINOLONE [Concomitant]
     Active Substance: TRIAMCINOLONE
  19. VELCADE [Concomitant]
     Active Substance: BORTEZOMIB
  20. FLUTICASONE [Concomitant]
     Active Substance: FLUTICASONE
  21. MOUNJARO [Concomitant]
     Active Substance: TIRZEPATIDE

REACTIONS (16)
  - Blood glucose increased [Unknown]
  - Hypersomnia [Unknown]
  - Disturbance in attention [Unknown]
  - Sluggishness [Unknown]
  - Balance disorder [Unknown]
  - Malaise [Unknown]
  - White blood cell count decreased [Not Recovered/Not Resolved]
  - Abdominal discomfort [Not Recovered/Not Resolved]
  - Ageusia [Unknown]
  - Decreased appetite [Not Recovered/Not Resolved]
  - Fatigue [Not Recovered/Not Resolved]
  - Dehydration [Recovered/Resolved]
  - Nausea [Not Recovered/Not Resolved]
  - Dizziness [Not Recovered/Not Resolved]
  - Diarrhoea [Not Recovered/Not Resolved]
  - Product dose omission issue [Unknown]

NARRATIVE: CASE EVENT DATE: 20230101
